FAERS Safety Report 21177620 (Version 2)
Quarter: 2022Q3

REPORT INFORMATION
  Report Type: Spontaneous
  Country: IT (occurrence: IT)
  Receive Date: 20220805
  Receipt Date: 20220819
  Transmission Date: 20221026
  Serious: Yes (Hospitalization)
  Sender: FDA-Public Use
  Company Number: IT-TEVA-2022-IT-2059893

PATIENT
  Age: 4 Decade
  Sex: Female

DRUGS (5)
  1. CARBOPLATIN [Suspect]
     Active Substance: CARBOPLATIN
     Indication: Ovarian cancer
     Dosage: 4 CYCLES; AS FIRST LINE THERAPY
     Route: 065
     Dates: start: 20170519, end: 20170915
  2. CARBOPLATIN [Suspect]
     Active Substance: CARBOPLATIN
     Dosage: SECOND-LINE CHEMOTHERAPY; 6 CYCLES
     Route: 065
     Dates: start: 20181217, end: 20190607
  3. BEVACIZUMAB [Suspect]
     Active Substance: BEVACIZUMAB
     Indication: Ovarian cancer
     Dosage: TOTAL 7 CYCLES OF BEVACIZUMAB
     Route: 065
     Dates: start: 2017, end: 201803
  4. PACLITAXEL [Concomitant]
     Active Substance: PACLITAXEL
     Indication: Ovarian cancer
     Dosage: 4 CYCLES
     Route: 065
     Dates: start: 20170519, end: 20170915
  5. DOXORUBICIN [Concomitant]
     Active Substance: DOXORUBICIN
     Indication: Ovarian cancer
     Dosage: SECOND-LINE CHEMOTHERAPY; 6 CYCLES
     Route: 065
     Dates: start: 20181217, end: 20190607

REACTIONS (2)
  - Female genital tract fistula [Recovering/Resolving]
  - Drug hypersensitivity [Unknown]

NARRATIVE: CASE EVENT DATE: 20180501
